FAERS Safety Report 15202698 (Version 1)
Quarter: 2018Q3

REPORT INFORMATION
  Report Type: Spontaneous
  Country: NZ (occurrence: NZ)
  Receive Date: 20180726
  Receipt Date: 20180726
  Transmission Date: 20181010
  Serious: Yes (Life-Threatening, Hospitalization)
  Sender: FDA-Public Use
  Company Number: NZ-MYLANLABS-2018M1054817

PATIENT
  Age: 27 Year
  Sex: Male

DRUGS (3)
  1. LIDOCAINE. [Concomitant]
     Active Substance: LIDOCAINE
     Indication: PRODUCT USED FOR UNKNOWN INDICATION
     Route: 058
  2. TRIAMCINOLONE [Suspect]
     Active Substance: TRIAMCINOLONE
     Indication: NERVE ROOT COMPRESSION
     Dosage: INJECTED SLOWLY AROUND THE EXITING NERVE ROOT AT 8.40 AM
     Route: 008
  3. BUPIVACAINE. [Suspect]
     Active Substance: BUPIVACAINE
     Indication: NERVE ROOT COMPRESSION
     Dosage: INJECTED SLOWLY AROUND THE EXITING NERVE ROOT AT 8.40 AM
     Route: 008

REACTIONS (6)
  - Hypertension [Recovered/Resolved]
  - Loss of consciousness [Recovered/Resolved]
  - Paralysis [Recovered/Resolved]
  - Paraesthesia [Recovered/Resolved]
  - Respiratory arrest [Recovered/Resolved]
  - Tachycardia [Recovered/Resolved]
